FAERS Safety Report 5417258-2 (Version None)
Quarter: 2007Q3

REPORT INFORMATION
  Report Type: 
  Country: None (occurrence: None)
  Receive Date: 20070816
  Receipt Date: 20070802
  Transmission Date: 20080115
  Serious: Yes (Death, Other)
  Sender: FDA-Public Use
  Company Number: JP-SHR-JP-2007-028984

PATIENT
  Age: 78 Year
  Sex: Male

DRUGS (11)
  1. SOTALOL HCL [Suspect]
     Indication: ATRIAL FLUTTER
     Dosage: 80 MG, 1X/DAY
     Route: 048
     Dates: start: 20060416, end: 20060916
  2. LANIRAPID [Concomitant]
     Dosage: .1 MG, UNK
     Route: 048
     Dates: start: 20060413, end: 20060916
  3. LASIX [Concomitant]
     Dosage: 20 MG, UNK
     Route: 048
     Dates: start: 20060414, end: 20060916
  4. ALDACTONE [Concomitant]
     Dosage: 25 MG, UNK
     Route: 048
     Dates: start: 20060414, end: 20060916
  5. ASPIRIN [Concomitant]
     Dosage: 100 MG, UNK
     Route: 048
     Dates: start: 20060509, end: 20060916
  6. TICLOPIDINE HCL [Concomitant]
     Dosage: 100 MG, UNK
     Route: 048
     Dates: start: 20060509, end: 20060916
  7. SIGMART [Concomitant]
     Dosage: 15 MG, UNK
     Route: 048
     Dates: start: 20060523, end: 20060916
  8. WARFARIN [Concomitant]
     Dosage: 3 MG, UNK
     Route: 048
     Dates: start: 20060415, end: 20060501
  9. WARFARIN [Concomitant]
     Dosage: 2 MG, UNK
     Route: 048
     Dates: start: 20060424, end: 20060916
  10. WARFARIN [Concomitant]
     Dosage: 1.5 MG, UNK
     Route: 048
     Dates: start: 20060424, end: 20060501
  11. WARFARIN [Concomitant]
     Dosage: 1.75 MG, UNK
     Route: 048
     Dates: start: 20060523, end: 20060916

REACTIONS (4)
  - ACUTE MYOCARDIAL INFARCTION [None]
  - DUODENAL ULCER HAEMORRHAGE [None]
  - VENTRICULAR FIBRILLATION [None]
  - VENTRICULAR TACHYCARDIA [None]
